FAERS Safety Report 21023955 (Version 1)
Quarter: 2022Q2

REPORT INFORMATION
  Report Type: Spontaneous
  Country: US (occurrence: None)
  Receive Date: 20220629
  Receipt Date: 20220629
  Transmission Date: 20220721
  Serious: Yes (Hospitalization)
  Sender: FDA-Public Use
  Company Number: None

PATIENT
  Age: 75 Year
  Sex: Female
  Weight: 54.88 kg

DRUGS (5)
  1. PIQRAY [Suspect]
     Active Substance: ALPELISIB
     Indication: Breast cancer female
     Dosage: FREQUENCY : DAILY;?
     Route: 048
  2. AMLODIPINE [Concomitant]
  3. LETROZOLE [Concomitant]
     Active Substance: LETROZOLE
  4. PROCRIT [Concomitant]
     Active Substance: ERYTHROPOIETIN
  5. XGEVA [Concomitant]
     Active Substance: DENOSUMAB

REACTIONS (2)
  - Abscess [None]
  - Infection [None]
